FAERS Safety Report 9967770 (Version 1)
Quarter: 2014Q1

REPORT INFORMATION
  Report Type: Report from Study
  Country: US (occurrence: US)
  Receive Date: 20140306
  Receipt Date: 20140306
  Transmission Date: 20141002
  Serious: Yes (Hospitalization)
  Sender: FDA-Public Use
  Company Number: US-ABBVIE-13P-163-1138245-00

PATIENT
  Age: 23 Year
  Sex: 0

DRUGS (26)
  1. HUMIRA [Suspect]
     Indication: CROHN^S DISEASE
     Dates: start: 20120926, end: 20130531
  2. HUMIRA [Suspect]
     Dates: start: 20120601, end: 20120627
  3. PRENATAL VITAMINS [Concomitant]
     Indication: PRODUCT USED FOR UNKNOWN INDICATION
     Route: 048
     Dates: start: 20120926, end: 20130416
  4. PRENATAL VITAMINS [Concomitant]
     Route: 048
     Dates: start: 20130416, end: 20130627
  5. TEA [Concomitant]
     Indication: PRODUCT USED FOR UNKNOWN INDICATION
     Dosage: 1 SERVING
     Route: 048
     Dates: start: 20120926, end: 20130406
  6. TEA [Concomitant]
     Dosage: 1 SERVING
     Route: 048
     Dates: start: 20130407, end: 20130606
  7. ZOFRAN [Concomitant]
     Indication: NAUSEA
     Dosage: 3 TABLETS DAILY
     Route: 048
     Dates: start: 20121024, end: 20121212
  8. PROMETHAZINE [Concomitant]
     Indication: NAUSEA
     Route: 048
     Dates: start: 20121024, end: 20121212
  9. FLU VACCINE NOS [Concomitant]
     Indication: PRODUCT USED FOR UNKNOWN INDICATION
     Route: 050
     Dates: start: 20121024, end: 20121024
  10. TYLENOL [Concomitant]
     Indication: HEADACHE
     Dates: start: 20120926, end: 20130531
  11. TYLENOL [Concomitant]
     Indication: ABDOMINAL PAIN
     Dates: start: 20121225, end: 20130531
  12. CALCIUM + VITAMIN D [Concomitant]
     Indication: PRODUCT USED FOR UNKNOWN INDICATION
     Route: 048
     Dates: start: 20130208, end: 20130627
  13. PREDNISONE [Concomitant]
     Indication: CROHN^S DISEASE
     Route: 048
     Dates: start: 20130222, end: 20130228
  14. PREDNISONE [Concomitant]
     Route: 048
     Dates: start: 20130301, end: 20130307
  15. PREDNISONE [Concomitant]
     Route: 048
     Dates: start: 20130308, end: 20130314
  16. PREDNISONE [Concomitant]
     Route: 048
     Dates: start: 20130315, end: 20130429
  17. PREDNISONE [Concomitant]
     Route: 048
     Dates: start: 20130430, end: 20130501
  18. PREDNISONE [Concomitant]
     Route: 048
     Dates: start: 20130501, end: 20130502
  19. PREDNISONE [Concomitant]
     Route: 048
     Dates: start: 20130503, end: 20130504
  20. PREDNISONE [Concomitant]
     Route: 048
     Dates: start: 20130505, end: 20130506
  21. PREDNISONE [Concomitant]
     Route: 048
     Dates: start: 20130507, end: 20130627
  22. LORTAB [Concomitant]
     Indication: PAIN
     Dosage: 2 TABLETS DAILY
     Route: 048
     Dates: start: 20130220, end: 20130430
  23. LORTAB [Concomitant]
     Indication: CROHN^S DISEASE
     Dosage: 1/2 - 1 TABLET DAILY
     Route: 048
     Dates: start: 20130105, end: 20130531
  24. LORTAB [Concomitant]
     Dosage: 8 TABLETD DAILY
     Route: 048
     Dates: start: 20130601, end: 20130627
  25. BENADRYL [Concomitant]
     Indication: SLEEP DISORDER THERAPY
     Dates: start: 20130509, end: 20130523
  26. RANITIDINE HCL [Concomitant]
     Indication: GASTROOESOPHAGEAL REFLUX DISEASE
     Route: 048
     Dates: start: 20130603, end: 20130627

REACTIONS (10)
  - Pain [Unknown]
  - Gastrooesophageal reflux disease [Unknown]
  - Crohn^s disease [Recovered/Resolved]
  - Pharyngitis streptococcal [Recovered/Resolved]
  - Groin abscess [Unknown]
  - Nausea [Unknown]
  - Headache [Unknown]
  - Abdominal pain [Unknown]
  - Road traffic accident [Unknown]
  - Crohn^s disease [Unknown]
